FAERS Safety Report 8200220-4 (Version None)
Quarter: 2012Q1

REPORT INFORMATION
  Report Type: 
  Country: None (occurrence: None)
  Receive Date: 20120312
  Receipt Date: 20120301
  Transmission Date: 20120608
  Serious: Yes (Other)
  Sender: FDA-Public Use
  Company Number: CA-SANOFI-AVENTIS-2012SA014731

PATIENT
  Age: 67 Year
  Sex: Male

DRUGS (6)
  1. DDAVP [Suspect]
     Route: 058
  2. ARANESP [Concomitant]
     Route: 042
  3. LANTUS [Concomitant]
     Route: 058
  4. RABEPRAZOLE SODIUM [Concomitant]
     Route: 048
  5. APIDRA [Concomitant]
     Route: 058
  6. PRAMIPEXOLE DIHYDROCHLORIDE [Concomitant]
     Route: 048

REACTIONS (1)
  - HYPERTENSION [None]
